FAERS Safety Report 12621743 (Version 1)
Quarter: 2016Q3

REPORT INFORMATION
  Report Type: Spontaneous
  Country: US (occurrence: US)
  Receive Date: 20160804
  Receipt Date: 20160804
  Transmission Date: 20161109
  Serious: No
  Sender: FDA-Public Use
  Company Number: PHHY2016US107023

PATIENT
  Age: 40 Year
  Sex: Female

DRUGS (2)
  1. REVLIMID [Concomitant]
     Active Substance: LENALIDOMIDE
     Indication: PRODUCT USED FOR UNKNOWN INDICATION
     Route: 065
  2. CAMBIA [Suspect]
     Active Substance: DICLOFENAC POTASSIUM
     Indication: PAIN
     Dosage: 50 MG, ONCE/SINGLE
     Route: 048
     Dates: start: 20160218

REACTIONS (2)
  - Off label use [Unknown]
  - Constipation [Unknown]

NARRATIVE: CASE EVENT DATE: 20160218
